FAERS Safety Report 19356370 (Version 8)
Quarter: 2021Q3

REPORT INFORMATION
  Report Type: Spontaneous
  Country: BR (occurrence: BR)
  Receive Date: 20210602
  Receipt Date: 20210921
  Transmission Date: 20211014
  Serious: Yes (Hospitalization, Other)
  Sender: FDA-Public Use
  Company Number: BR-IPSEN BIOPHARMACEUTICALS, INC.-2021-04564

PATIENT
  Age: 36 Year
  Sex: Female
  Weight: 104 kg

DRUGS (9)
  1. SOMATULINE AUTOGEL [Suspect]
     Active Substance: LANREOTIDE ACETATE
     Indication: ACROMEGALY
     Dosage: 120 MILLIGRAM, O SYRINGE WAS APPLIED ON RIGHT ARM
     Route: 058
     Dates: start: 20210218
  2. SIMVASTATIN. [Concomitant]
     Active Substance: SIMVASTATIN
     Indication: BLOOD CHOLESTEROL ABNORMAL
     Dosage: 1 TABLET AT NIGHT, USES FOR APPROXIMATELY 4 YEARS
     Route: 048
     Dates: start: 2017
  3. PREDSIN [Concomitant]
     Active Substance: CHLORAMPHENICOL\PREDNISOLONE
     Indication: HORMONE REPLACEMENT THERAPY
     Dosage: 1 TABLET EVERY MORNING, USES FOR APPROXIMATELY 5 YEARS
  4. LOSARTAN. [Concomitant]
     Active Substance: LOSARTAN
     Indication: HYPERTENSION
     Dosage: 1 TABLETS EACH 12 HOURS, USES FOR APPROXIMATELY FOUR YEARS
     Route: 048
     Dates: start: 2017
  5. GLIMEPIRIDE. [Concomitant]
     Active Substance: GLIMEPIRIDE
     Indication: TYPE 2 DIABETES MELLITUS
     Dosage: 1 TABLET A DAY
     Route: 048
     Dates: start: 2017
  6. PFIZER?BIONTECH COVID?19 VACCINE [Suspect]
     Active Substance: TOZINAMERAN
     Indication: COVID-19 IMMUNISATION
     Route: 065
     Dates: start: 20210610
  7. GLIMEPIRIDE. [Concomitant]
     Active Substance: GLIMEPIRIDE
     Route: 048
     Dates: start: 202102
  8. OMEPRAZOLE. [Concomitant]
     Active Substance: OMEPRAZOLE
     Indication: GASTRITIS
     Dosage: 1 TABLET WHEN SHE FEELS DISCOMFORT
     Route: 048
     Dates: start: 2017
  9. METFORMIN [Concomitant]
     Active Substance: METFORMIN HYDROCHLORIDE
     Indication: DIABETES MELLITUS
     Dosage: ONGOING,?3 TABLETS A DAY (1 EACH MEAL)
     Route: 048
     Dates: start: 2017

REACTIONS (24)
  - Malaise [Unknown]
  - Injection site pain [Recovered/Resolved]
  - Injection site hypersensitivity [Recovered/Resolved]
  - Headache [Not Recovered/Not Resolved]
  - Diabetic metabolic decompensation [Unknown]
  - Urinary tract infection [Recovered/Resolved]
  - Abdominal pain [Recovered/Resolved]
  - Seizure [Recovered/Resolved]
  - Vomiting [Recovered/Resolved]
  - Dizziness [Not Recovered/Not Resolved]
  - Injection site discomfort [Recovered/Resolved]
  - Abdominal pain [Recovered/Resolved]
  - Nausea [Recovered/Resolved]
  - Urinary tract infection [Unknown]
  - Paronychia [Unknown]
  - Product administered at inappropriate site [Unknown]
  - Pyrexia [Recovered/Resolved]
  - Injection site pain [Recovered/Resolved]
  - Back pain [Recovered/Resolved]
  - Asthenia [Not Recovered/Not Resolved]
  - Nausea [Not Recovered/Not Resolved]
  - Product dose omission issue [Unknown]
  - Abdominal pain [Recovered/Resolved]
  - Abdominal discomfort [Recovered/Resolved]

NARRATIVE: CASE EVENT DATE: 2021
